FAERS Safety Report 12094590 (Version 1)
Quarter: 2016Q1

REPORT INFORMATION
  Report Type: Spontaneous
  Country: US (occurrence: US)
  Receive Date: 20160219
  Receipt Date: 20160219
  Transmission Date: 20160526
  Serious: Yes (Other)
  Sender: FDA-Public Use
  Company Number: US-APOTEX-2016AP006600

PATIENT
  Sex: Male

DRUGS (11)
  1. CLONAZEPAM TABLETS USP [Suspect]
     Active Substance: CLONAZEPAM
     Dosage: 0.5 MG AT BEDTIME
     Route: 065
  2. LEVETIRACETAM TABLETS [Suspect]
     Active Substance: LEVETIRACETAM
     Dosage: 80 MG/KG, QD
     Route: 065
  3. FOSPHENYTOIN SODIUM INJECTION USP [Suspect]
     Active Substance: FOSPHENYTOIN SODIUM
     Indication: STATUS EPILEPTICUS
     Dosage: 20 MG/KG, UNKNOWN
     Route: 065
  4. LEVETIRACETAM TABLETS [Suspect]
     Active Substance: LEVETIRACETAM
     Indication: STATUS EPILEPTICUS
     Dosage: UNK, UNKNOWN
     Route: 065
  5. PHENOBARBITAL. [Suspect]
     Active Substance: PHENOBARBITAL
     Indication: SEIZURE
     Dosage: UNK UNK, UNKNOWN
     Route: 065
  6. PYRIDOXINE [Suspect]
     Active Substance: PYRIDOXINE
     Indication: STATUS EPILEPTICUS
     Dosage: 100 MG, UNK
     Route: 042
  7. CARBAMAZEPINE. [Suspect]
     Active Substance: CARBAMAZEPINE
     Indication: SEIZURE
     Dosage: UNK, UNKNOWN
     Route: 065
  8. LEVETIRACETAM TABLETS [Suspect]
     Active Substance: LEVETIRACETAM
     Dosage: 40 MG/KG, SINGLE BOLUS
     Route: 042
  9. STIRIPENTOL [Suspect]
     Active Substance: STIRIPENTOL
     Indication: STATUS EPILEPTICUS
     Route: 065
  10. CLONAZEPAM TABLETS USP [Suspect]
     Active Substance: CLONAZEPAM
     Indication: SEIZURE
     Dosage: UNK
     Route: 065
  11. TOPIRAMATE. [Suspect]
     Active Substance: TOPIRAMATE
     Indication: STATUS EPILEPTICUS
     Dosage: 2 MG/KG, UNKNOWN
     Route: 065

REACTIONS (6)
  - Change in seizure presentation [Not Recovered/Not Resolved]
  - Seizure [Unknown]
  - Neonatal oversedation [Recovered/Resolved]
  - Condition aggravated [Recovered/Resolved with Sequelae]
  - Drug ineffective [Unknown]
  - Hypotonia neonatal [Unknown]
